FAERS Safety Report 5342014-3 (Version None)
Quarter: 2007Q2

REPORT INFORMATION
  Report Type: 
  Country: None (occurrence: None)
  Receive Date: 20070530
  Receipt Date: 20070530
  Transmission Date: 20071010
  Serious: Yes (Other)
  Sender: FDA-Public Use
  Company Number: None

PATIENT
  Age: 24 Year
  Sex: Female
  Weight: 90.7194 kg

DRUGS (2)
  1. ADVANCED WOMAN'S FORMULA MULTIVITAMINS FUTUREBIOTICS [Suspect]
     Indication: FATIGUE
     Dosage: 2 TABLETS DAILY
     Dates: start: 20060901, end: 20070428
  2. ADVANCED WOMAN'S FORMULA MULTIVITAMINS FUTUREBIOTICS [Suspect]
     Indication: IRON DEFICIENCY
     Dosage: 2 TABLETS DAILY
     Dates: start: 20060901, end: 20070428

REACTIONS (3)
  - MENSTRUATION IRREGULAR [None]
  - STRESS [None]
  - WEIGHT INCREASED [None]
